FAERS Safety Report 23204445 (Version 1)
Quarter: 2023Q4

REPORT INFORMATION
  Report Type: Spontaneous
  Country: US (occurrence: US)
  Receive Date: 20231120
  Receipt Date: 20231120
  Transmission Date: 20240109
  Serious: No
  Sender: FDA-Public Use
  Company Number: US-MICRO LABS LIMITED-ML2023-06431

PATIENT
  Age: 88 Year
  Sex: Female
  Weight: 63.5 kg

DRUGS (3)
  1. TRAVOPROST [Suspect]
     Active Substance: TRAVOPROST
     Indication: Glaucoma
     Dosage: 01 IN EACH EYE, ONCE A DAY AT NIGHT
     Route: 047
  2. BRIMONIDINE [Concomitant]
     Active Substance: BRIMONIDINE TARTRATE
     Indication: Glaucoma
     Dosage: 01 DROP IN EACH EYE, TWICE A DAY IN THE MORNING AND AT NIGHT
     Route: 047
  3. TIMOLOL. [Concomitant]
     Indication: Glaucoma
     Dosage: 01 DROP IN EACH EYE IN THE MORNING
     Route: 047

REACTIONS (3)
  - Product dose omission issue [Unknown]
  - Product container issue [Unknown]
  - No adverse event [Unknown]
